FAERS Safety Report 7799297-X (Version None)
Quarter: 2011Q4

REPORT INFORMATION
  Report Type: 
  Country: None (occurrence: None)
  Receive Date: 20111006
  Receipt Date: 20110929
  Transmission Date: 20120403
  Serious: Yes (Other)
  Sender: FDA-Public Use
  Company Number: US-SANOFI-AVENTIS-2011SA064850

PATIENT
  Sex: Female

DRUGS (2)
  1. ALLEGRA D 24 HOUR [Suspect]
     Route: 048
     Dates: start: 20110929
  2. ALLEGRA [Suspect]
     Route: 048

REACTIONS (2)
  - CATARACT [None]
  - DRUG INEFFECTIVE [None]
